FAERS Safety Report 10608572 (Version 2)
Quarter: 2014Q4

REPORT INFORMATION
  Report Type: Spontaneous
  Country: US (occurrence: US)
  Receive Date: 20141125
  Receipt Date: 20141125
  Transmission Date: 20150529
  Serious: Yes (Other)
  Sender: FDA-Public Use
  Company Number: US-ABBVIE-14P-163-1309890-00

PATIENT
  Age: 34 Year
  Sex: Female
  Weight: 65.83 kg

DRUGS (1)
  1. ULTANE [Suspect]
     Active Substance: SEVOFLURANE
     Indication: GENERAL ANAESTHESIA
     Route: 055
     Dates: start: 20141113, end: 20141113

REACTIONS (4)
  - Anaesthetic complication [Unknown]
  - Incorrect dose administered by device [Not Recovered/Not Resolved]
  - Anaesthetic complication [Recovered/Resolved]
  - Device issue [Not Recovered/Not Resolved]

NARRATIVE: CASE EVENT DATE: 20141113
